FAERS Safety Report 18847336 (Version 1)
Quarter: 2021Q1

REPORT INFORMATION
  Report Type: Spontaneous
  Country: IT (occurrence: IT)
  Receive Date: 20210204
  Receipt Date: 20210204
  Transmission Date: 20210419
  Serious: Yes (Other)
  Sender: FDA-Public Use
  Company Number: IT-JNJFOC-20210203369

PATIENT
  Age: 73 Year
  Sex: Female

DRUGS (1)
  1. DARZALEX [Suspect]
     Active Substance: DARATUMUMAB
     Indication: PLASMA CELL MYELOMA
     Dosage: ; CYCLICAL
     Route: 042
     Dates: start: 20210126

REACTIONS (4)
  - Anaphylactic reaction [Recovered/Resolved]
  - Oxygen saturation decreased [Unknown]
  - Hypertension [Recovered/Resolved]
  - Infusion related reaction [Unknown]

NARRATIVE: CASE EVENT DATE: 20210126
